FAERS Safety Report 4520097-8 (Version None)
Quarter: 2004Q4

REPORT INFORMATION
  Report Type: 
  Country: None (occurrence: None)
  Receive Date: 20041207
  Receipt Date: 20041203
  Transmission Date: 20050328
  Serious: Yes (Life-Threatening)
  Sender: FDA-Public Use
  Company Number: US-BRISTOL-MYERS SQUIBB COMPANY-12784377

PATIENT
  Age: 33 Year
  Sex: Male
  Weight: 98 kg

DRUGS (6)
  1. SUSTIVA [Suspect]
     Indication: HIV INFECTION
     Dosage: ONCE NIGHTLY
     Route: 048
     Dates: start: 20030508
  2. EPIVIR [Suspect]
     Indication: HIV INFECTION
     Route: 048
     Dates: start: 20020211
  3. RETROVIR [Suspect]
     Indication: HIV INFECTION
     Route: 048
     Dates: start: 20020215
  4. IBUPROFEN [Concomitant]
     Dates: start: 20020228
  5. ASPIRIN [Concomitant]
     Dates: start: 20020228
  6. M.V.I. [Concomitant]
     Dosage: DOSAGE FORM: TABLET, ONCE DAILY
     Dates: start: 20020901

REACTIONS (1)
  - LOW DENSITY LIPOPROTEIN INCREASED [None]
